FAERS Safety Report 4562857-3 (Version None)
Quarter: 2005Q1

REPORT INFORMATION
  Report Type: 
  Country: None (occurrence: None)
  Receive Date: 20050121
  Receipt Date: 20050110
  Transmission Date: 20050727
  Serious: Yes (Life-Threatening, Hospitalization)
  Sender: FDA-Public Use
  Company Number: 2005008373

PATIENT
  Age: 59 Year
  Weight: 82 kg

DRUGS (2)
  1. ZOLOFT [Suspect]
     Indication: DEPRESSION
     Dosage: 100 MG (1 IN 1 D)
     Dates: start: 20030624, end: 20040912
  2. FENOTEROL HYDROBROMIDE (FENOTEROL HYDROBROMIDE) [Concomitant]

REACTIONS (1)
  - EPILEPSY [None]
